FAERS Safety Report 6825981-8 (Version None)
Quarter: 2010Q3

REPORT INFORMATION
  Report Type: 
  Country: None (occurrence: None)
  Receive Date: 20100709
  Receipt Date: 20100624
  Transmission Date: 20110219
  Serious: No
  Sender: FDA-Public Use
  Company Number: A0864018A

PATIENT
  Age: 90 Year
  Sex: Female

DRUGS (4)
  1. EXTINA [Suspect]
     Indication: FUNGAL INFECTION
     Dosage: 1APP TWICE PER DAY
     Route: 061
     Dates: start: 20100606, end: 20100607
  2. SYNTHROID [Concomitant]
  3. TOPROL-XL [Concomitant]
  4. ASPIRIN [Concomitant]

REACTIONS (3)
  - BURNING SENSATION [None]
  - ERYTHEMA [None]
  - PAIN IN EXTREMITY [None]
